FAERS Safety Report 5465223-1 (Version None)
Quarter: 2007Q3

REPORT INFORMATION
  Report Type: 
  Country: None (occurrence: None)
  Receive Date: 20070924
  Receipt Date: 20070911
  Transmission Date: 20080115
  Serious: Yes (Hospitalization)
  Sender: FDA-Public Use
  Company Number: PHHO2007US15285

PATIENT
  Age: 35 Year
  Sex: Male
  Weight: 90 kg

DRUGS (8)
  1. LISINOPRIL [Concomitant]
  2. LOPRESSOR [Concomitant]
  3. ADALAT [Concomitant]
  4. LIPITOR [Concomitant]
  5. ASPIRIN [Concomitant]
  6. PROTONIX [Concomitant]
  7. ERL 080A ERL+TAB [Suspect]
     Indication: RENAL TRANSPLANT
     Dosage: 1.44 G, QD
     Route: 048
     Dates: start: 20070111
  8. CYCLOSPORINE [Concomitant]
     Indication: RENAL TRANSPLANT
     Dosage: 275 MG DAILY
     Route: 048

REACTIONS (8)
  - CYTOMEGALOVIRUS INFECTION [None]
  - DEHYDRATION [None]
  - DIARRHOEA [None]
  - FATIGUE [None]
  - HYPOTENSION [None]
  - LEUKOCYTOSIS [None]
  - LIVER FUNCTION TEST ABNORMAL [None]
  - PYREXIA [None]
